FAERS Safety Report 21133004 (Version 3)
Quarter: 2022Q3

REPORT INFORMATION
  Report Type: Spontaneous
  Country: DE (occurrence: DE)
  Receive Date: 20220726
  Receipt Date: 20220825
  Transmission Date: 20221027
  Serious: Yes (Death, Other)
  Sender: FDA-Public Use
  Company Number: DE-NOVARTISPH-NVSC2022DE168176

PATIENT
  Age: 70 Year
  Sex: Female
  Weight: 67.5 kg

DRUGS (5)
  1. DEXAMETHASONE [Suspect]
     Active Substance: DEXAMETHASONE
     Indication: Plasma cell myeloma
     Dosage: 8 MG
     Route: 065
     Dates: end: 20220405
  2. DEXAMETHASONE [Suspect]
     Active Substance: DEXAMETHASONE
     Dosage: 14 MG
     Route: 065
     Dates: start: 20220315, end: 20220405
  3. ELOTUZUMAB [Suspect]
     Active Substance: ELOTUZUMAB
     Indication: Plasma cell myeloma
     Dosage: 680 MG, WEEKLY, 28 DAYS, 4 APPLICATION DAYS PER CYCLE
     Route: 065
     Dates: start: 20220315, end: 20220405
  4. POMALIDOMIDE [Suspect]
     Active Substance: POMALIDOMIDE
     Indication: Plasma cell myeloma
     Dosage: 4 MG, 28 DAYS, 21 APPLICATION DAYS PER CYCLE
     Route: 065
     Dates: start: 20220315, end: 20220404
  5. POMALIDOMIDE [Suspect]
     Active Substance: POMALIDOMIDE
     Dosage: 4 MG
     Route: 065
     Dates: end: 20220502

REACTIONS (1)
  - Sepsis [Fatal]

NARRATIVE: CASE EVENT DATE: 20220411
